FAERS Safety Report 4384609-X (Version None)
Quarter: 2004Q2

REPORT INFORMATION
  Report Type: 
  Country: None (occurrence: None)
  Receive Date: 20040625
  Receipt Date: 20040527
  Transmission Date: 20050107
  Serious: Yes (Hospitalization, Other)
  Sender: FDA-Public Use
  Company Number: PHNU2004DE01943

PATIENT
  Age: 69 Year
  Sex: Female
  Weight: 70 kg

DRUGS (2)
  1. EXELON [Suspect]
     Dosage: 6 MG, ONCE/SINGLE
     Route: 048
     Dates: start: 20040519, end: 20040519
  2. ATROPINE SULFATE [Suspect]
     Dosage: UNKNOWN
     Route: 042
     Dates: start: 20040519, end: 20040519

REACTIONS (25)
  - ACCIDENTAL EXPOSURE [None]
  - AGITATION [None]
  - ANTICHOLINERGIC SYNDROME [None]
  - APHASIA [None]
  - BLOOD CREATINE PHOSPHOKINASE INCREASED [None]
  - BRADYCARDIA [None]
  - COGNITIVE DISORDER [None]
  - CONFUSIONAL STATE [None]
  - DRY SKIN [None]
  - ERYTHEMA [None]
  - HALLUCINATION, VISUAL [None]
  - HEADACHE [None]
  - HYPERHIDROSIS [None]
  - HYPERTENSION [None]
  - LEUKOCYTOSIS [None]
  - MYDRIASIS [None]
  - NAUSEA [None]
  - PUPILLARY REFLEX IMPAIRED [None]
  - RESTLESSNESS [None]
  - SINUS TACHYCARDIA [None]
  - SOMNOLENCE [None]
  - SPEECH DISORDER [None]
  - SYNCOPE [None]
  - URINARY TRACT INFECTION [None]
  - VOMITING [None]
